FAERS Safety Report 13272529 (Version 1)
Quarter: 2017Q1

REPORT INFORMATION
  Report Type: Spontaneous
  Country: US (occurrence: US)
  Receive Date: 20170226
  Receipt Date: 20170226
  Transmission Date: 20170428
  Serious: No
  Sender: FDA-Public Use
  Company Number: None

PATIENT
  Age: 25 Year
  Sex: Female
  Weight: 72 kg

DRUGS (12)
  1. CALCIUM [Concomitant]
     Active Substance: CALCIUM
  2. SPIRULINA [Concomitant]
     Active Substance: SPIRULINA
  3. IBUPROFEN. [Concomitant]
     Active Substance: IBUPROFEN
  4. SUMATRIPTAN SUCC [Suspect]
     Active Substance: SUMATRIPTAN SUCCINATE
     Indication: MIGRAINE
     Dosage: QUANTITY:0.5 CAPSULE(S);?
     Route: 048
     Dates: start: 20170219, end: 20170222
  5. TRETINOIN. [Concomitant]
     Active Substance: TRETINOIN
  6. XANAX [Concomitant]
     Active Substance: ALPRAZOLAM
  7. CLINDAMYCIN TOPICAL SOLUTION [Concomitant]
  8. FLONASE [Concomitant]
     Active Substance: FLUTICASONE PROPIONATE
  9. CLINDAMYCIN LOTION [Concomitant]
  10. EVENING PRIMROSE OIL [Concomitant]
     Active Substance: EVENING PRIMROSE OIL
  11. VITAMIN D3 [Concomitant]
     Active Substance: CHOLECALCIFEROL
  12. EXCEDRIN MIGRAINE [Concomitant]
     Active Substance: ACETAMINOPHEN\ASPIRIN\CAFFEINE

REACTIONS (1)
  - Photophobia [None]

NARRATIVE: CASE EVENT DATE: 20170222
